FAERS Safety Report 15687309 (Version 2)
Quarter: 2018Q4

REPORT INFORMATION
  Report Type: Report from Study
  Country: None (occurrence: US)
  Receive Date: 20181205
  Receipt Date: 20181213
  Transmission Date: 20190205
  Serious: Yes (Other)
  Sender: FDA-Public Use
  Company Number: US-ABBVIE-18K-163-2574531-00

PATIENT
  Sex: Female
  Weight: 81.27 kg

DRUGS (13)
  1. PANTOPRAZOLE [Concomitant]
     Active Substance: PANTOPRAZOLE
     Indication: GASTROOESOPHAGEAL REFLUX DISEASE
  2. NORTRIPTYLINE [Concomitant]
     Active Substance: NORTRIPTYLINE
     Indication: ANXIETY
  3. PHENTERMINE. [Concomitant]
     Active Substance: PHENTERMINE
     Indication: SEDATIVE THERAPY
  4. ZURVITA ZEAL [Concomitant]
     Indication: SUPPLEMENTATION THERAPY
  5. VITAMIN D [Concomitant]
     Active Substance: CHOLECALCIFEROL
     Indication: BONE DISORDER
  6. TYLENOL [Concomitant]
     Active Substance: ACETAMINOPHEN
     Indication: PAIN
  7. NORTRIPTYLINE [Concomitant]
     Active Substance: NORTRIPTYLINE
     Indication: SLEEP DISORDER THERAPY
  8. PHENTERMINE. [Concomitant]
     Active Substance: PHENTERMINE
     Indication: INCREASED APPETITE
  9. ESTROVEN [Concomitant]
     Active Substance: DIETARY SUPPLEMENT
     Indication: MENOPAUSE
  10. IRON [Concomitant]
     Active Substance: IRON
     Indication: ANAEMIA
  11. LORAZEPAM. [Concomitant]
     Active Substance: LORAZEPAM
     Indication: PANIC ATTACK
  12. HUMIRA [Suspect]
     Active Substance: ADALIMUMAB
     Indication: PSORIATIC ARTHROPATHY
     Route: 058
     Dates: start: 20180907, end: 20181111
  13. TURMERIC [Concomitant]
     Active Substance: HERBALS\TURMERIC
     Indication: INFLAMMATION

REACTIONS (5)
  - Malaise [Unknown]
  - Visual impairment [Not Recovered/Not Resolved]
  - Suicidal ideation [Recovered/Resolved]
  - Nausea [Unknown]
  - Fatigue [Recovered/Resolved]

NARRATIVE: CASE EVENT DATE: 2018
